FAERS Safety Report 10584412 (Version 1)
Quarter: 2014Q4

REPORT INFORMATION
  Report Type: Spontaneous
  Country: US (occurrence: None)
  Receive Date: 20141113
  Receipt Date: 20141113
  Transmission Date: 20150529
  Serious: No
  Sender: FDA-Public Use
  Company Number: None

PATIENT
  Age: 41 Year
  Sex: Female

DRUGS (1)
  1. NASACORT [Suspect]
     Active Substance: TRIAMCINOLONE ACETONIDE
     Indication: NASAL CONGESTION
     Dates: start: 20141109, end: 20141109

REACTIONS (6)
  - Vomiting [None]
  - Influenza [None]
  - Fatigue [None]
  - Nasal pruritus [None]
  - Nausea [None]
  - Vaginal infection [None]

NARRATIVE: CASE EVENT DATE: 20141110
